FAERS Safety Report 4482056-3 (Version None)
Quarter: 2004Q3

REPORT INFORMATION
  Report Type: 
  Country: None (occurrence: None)
  Receive Date: 20040921
  Receipt Date: 20040326
  Transmission Date: 20050211
  Serious: Yes (Death)
  Sender: FDA-Public Use
  Company Number: 2002-06-0278

PATIENT
  Age: 47 Year
  Sex: Male

DRUGS (13)
  1. THALOMID [Suspect]
     Indication: MULTIPLE MYELOMA
     Dosage: ORAL
     Route: 048
     Dates: start: 20010910, end: 20020320
  2. DEXAMETHASONE [Suspect]
     Indication: MULTIPLE MYELOMA
     Dates: start: 20010910, end: 20020320
  3. DT PACE [Suspect]
     Indication: MULTIPLE MYELOMA
     Dates: start: 20020321
  4. G-CSF (GRANULOCYTE COLONY STIMULATING FACTOR) [Concomitant]
  5. LEVAQUIN [Concomitant]
  6. DIFLUCAN [Concomitant]
  7. FLAGYL [Concomitant]
  8. PEPCID [Concomitant]
  9. ATIVAN [Concomitant]
  10. FENTANYL [Concomitant]
  11. OXYCONTIN [Concomitant]
  12. OXYCODONE (OXYCODONE) [Concomitant]
  13. ACYCLOVIR [Concomitant]

REACTIONS (5)
  - DEATH [None]
  - DEEP VEIN THROMBOSIS [None]
  - DISEASE PROGRESSION [None]
  - OEDEMA PERIPHERAL [None]
  - PANCYTOPENIA [None]
